FAERS Safety Report 15468486 (Version 1)
Quarter: 2018Q4

REPORT INFORMATION
  Report Type: Spontaneous
  Country: US (occurrence: US)
  Receive Date: 20181005
  Receipt Date: 20181005
  Transmission Date: 20190204
  Serious: No
  Sender: FDA-Public Use
  Company Number: PHEH2018US041053

PATIENT
  Sex: Female

DRUGS (2)
  1. COSENTYX [Suspect]
     Active Substance: SECUKINUMAB
     Indication: PRODUCT USED FOR UNKNOWN INDICATION
     Dosage: 150 MG, QW (LOADING DOSES)
     Route: 065
     Dates: start: 20180827
  2. COSENTYX [Suspect]
     Active Substance: SECUKINUMAB
     Dosage: 150 MG, QW (LOADING DOSES)
     Route: 065
     Dates: start: 20180924

REACTIONS (4)
  - Contusion [Not Recovered/Not Resolved]
  - Skin mass [Unknown]
  - Skin discolouration [Unknown]
  - Pain [Unknown]
